FAERS Safety Report 5663273-3 (Version None)
Quarter: 2008Q1

REPORT INFORMATION
  Report Type: 
  Country: None (occurrence: None)
  Receive Date: 20080313
  Receipt Date: 20080303
  Transmission Date: 20080703
  Serious: Yes (Life-Threatening, Hospitalization, Other)
  Sender: FDA-Public Use
  Company Number: JP-GENENTECH-254625

PATIENT
  Sex: Male
  Weight: 43 kg

DRUGS (10)
  1. BEVACIZUMAB [Suspect]
     Indication: RECTAL CANCER
     Dosage: 5 MG/KG, Q2W
     Route: 041
     Dates: start: 20071220, end: 20071220
  2. CAMPTO [Suspect]
     Indication: RECTAL CANCER
     Dosage: 240 MG, QD
     Route: 041
     Dates: start: 20071220, end: 20071220
  3. ISOVORIN [Suspect]
     Indication: RECTAL CANCER
     Dosage: 150 MG, QD
     Route: 041
     Dates: start: 20071220, end: 20071220
  4. FLUOROURACIL [Suspect]
     Indication: RECTAL CANCER
     Dosage: 600 MG, QD
     Route: 042
     Dates: start: 20071220, end: 20071223
  5. FAMOTIDINE [Concomitant]
     Indication: DRUG USE FOR UNKNOWN INDICATION
  6. TAMSULOSIN HCL [Concomitant]
     Indication: DRUG USE FOR UNKNOWN INDICATION
  7. BIO-THREE [Concomitant]
     Indication: DRUG USE FOR UNKNOWN INDICATION
  8. BASEN [Concomitant]
     Indication: DRUG USE FOR UNKNOWN INDICATION
  9. GLYBURIDE [Concomitant]
     Indication: DRUG USE FOR UNKNOWN INDICATION
  10. ACTOS [Concomitant]
     Indication: DRUG USE FOR UNKNOWN INDICATION

REACTIONS (4)
  - DISSEMINATED INTRAVASCULAR COAGULATION [None]
  - ILEUS [None]
  - PANCYTOPENIA [None]
  - SMALL INTESTINAL PERFORATION [None]
